FAERS Safety Report 7470720-3 (Version None)
Quarter: 2011Q2

REPORT INFORMATION
  Report Type: 
  Country: None (occurrence: None)
  Receive Date: 20110510
  Receipt Date: 20110428
  Transmission Date: 20111010
  Serious: Yes (Hospitalization)
  Sender: FDA-Public Use
  Company Number: PHHY2011FR36488

PATIENT
  Age: 65 Year
  Sex: Female

DRUGS (1)
  1. GLEEVEC [Suspect]
     Indication: GASTROINTESTINAL STROMAL TUMOUR
     Dosage: UNK
     Dates: start: 20091001, end: 20100301

REACTIONS (6)
  - HEPATIC MASS [None]
  - HAEMOLYTIC URAEMIC SYNDROME [None]
  - PERITONEAL CYST [None]
  - HAEMATURIA [None]
  - BLOOD COUNT ABNORMAL [None]
  - SYNOVIAL CYST [None]
